FAERS Safety Report 14540873 (Version 1)
Quarter: 2018Q1

REPORT INFORMATION
  Report Type: Spontaneous
  Country: NL (occurrence: NL)
  Receive Date: 20180216
  Receipt Date: 20180216
  Transmission Date: 20180509
  Serious: Yes (Other)
  Sender: FDA-Public Use
  Company Number: NL-OTSUKA-DJ20060524

PATIENT

DRUGS (2)
  1. ABILIFY [Suspect]
     Active Substance: ARIPIPRAZOLE
     Route: 065
  2. ABILIFY [Suspect]
     Active Substance: ARIPIPRAZOLE
     Indication: AUTISM SPECTRUM DISORDER
     Route: 065

REACTIONS (4)
  - Abdominal pain [Unknown]
  - Tension headache [Unknown]
  - Pyrexia [Unknown]
  - Vision blurred [Unknown]

NARRATIVE: CASE EVENT DATE: 20041103
